FAERS Safety Report 4906072-X (Version None)
Quarter: 2006Q1

REPORT INFORMATION
  Report Type: 
  Country: None (occurrence: None)
  Receive Date: 20060207
  Receipt Date: 20060207
  Transmission Date: 20060701
  Serious: Yes (Hospitalization)
  Sender: FDA-Public Use
  Company Number: None

PATIENT
  Age: 78 Year
  Sex: Male
  Weight: 45.4 kg

DRUGS (3)
  1. QUETIAPINE [Suspect]
     Indication: DEMENTIA
     Dosage: 25 MG QHS
     Dates: start: 20050927, end: 20051101
  2. GALANTAMINE HYDROBROMIDE [Concomitant]
  3. QUETIAPINE FLUMARATE [Concomitant]

REACTIONS (1)
  - CONVULSION [None]
